FAERS Safety Report 5256054-6 (Version None)
Quarter: 2007Q1

REPORT INFORMATION
  Report Type: 
  Country: None (occurrence: None)
  Receive Date: 20070302
  Receipt Date: 20070302
  Transmission Date: 20070707
  Serious: Yes (Hospitalization)
  Sender: FDA-Public Use
  Company Number: None

PATIENT
  Sex: Male
  Weight: 34 kg

DRUGS (2)
  1. THALIDOMIDE [Suspect]
     Indication: GLIOMA
     Dosage: 800 MG Q DAY PO
     Route: 048
     Dates: start: 20060317, end: 20070208
  2. CARBOPLATIN [Suspect]
     Indication: GLIOMA
     Dosage: 650 MG Q 28 DAYS IV
     Route: 042
     Dates: start: 20060317, end: 20070112

REACTIONS (4)
  - ANAPLASTIC ASTROCYTOMA [None]
  - METASTASIS [None]
  - RECURRENT CANCER [None]
  - STATUS EPILEPTICUS [None]
